FAERS Safety Report 10332913 (Version 1)
Quarter: 2014Q3

REPORT INFORMATION
  Report Type: Spontaneous
  Country: DE (occurrence: DE)
  Receive Date: 20140722
  Receipt Date: 20140722
  Transmission Date: 20150326
  Serious: Yes (Other)
  Sender: FDA-Public Use
  Company Number: DE-TEVA-495667GER

PATIENT
  Sex: Male

DRUGS (4)
  1. GABAPENTIN-RATIOPHARM [Suspect]
     Active Substance: GABAPENTIN
     Indication: PAIN MANAGEMENT
     Dosage: VARIOUS DOSAGES UP TO 800 MG DAILY
     Route: 048
     Dates: start: 2010, end: 201403
  2. AMITRIPTYLIN DURA 10 MG [Suspect]
     Active Substance: AMITRIPTYLINE
     Dosage: 10 MILLIGRAM DAILY; AT THE TIME OF THE REPORT: 10 MG DAILY
     Route: 048
  3. GABAPENTIN-RATIOPHARM [Suspect]
     Active Substance: GABAPENTIN
     Dosage: 200 MILLIGRAM DAILY;
     Route: 048
     Dates: start: 201403, end: 201407
  4. AMITRIPTYLIN DURA 10 MG [Suspect]
     Active Substance: AMITRIPTYLINE
     Indication: PAIN MANAGEMENT
     Dosage: VARIOUS DOSAGES UP TO 50 MG DAILY
     Route: 048

REACTIONS (8)
  - Circulatory collapse [Recovered/Resolved]
  - Drug dependence [Not Recovered/Not Resolved]
  - Asthenia [Not Recovered/Not Resolved]
  - Dizziness [Not Recovered/Not Resolved]
  - Chest pain [Not Recovered/Not Resolved]
  - Impaired work ability [Not Recovered/Not Resolved]
  - Dyspnoea [Not Recovered/Not Resolved]
  - Nausea [Not Recovered/Not Resolved]

NARRATIVE: CASE EVENT DATE: 2014
